FAERS Safety Report 21732638 (Version 2)
Quarter: 2022Q4

REPORT INFORMATION
  Report Type: Spontaneous
  Country: CH (occurrence: CH)
  Receive Date: 20221215
  Receipt Date: 20221227
  Transmission Date: 20230113
  Serious: Yes (Other)
  Sender: FDA-Public Use
  Company Number: CH-ORGANON-O2212CHE000781

PATIENT
  Age: 63 Year
  Sex: Female

DRUGS (6)
  1. EBASTINE [Suspect]
     Active Substance: EBASTINE
     Indication: Allergy prophylaxis
     Dosage: UNK
     Route: 048
  2. EBASTINE [Suspect]
     Active Substance: EBASTINE
     Indication: Antacid therapy
     Dosage: ONE TABLET EACH MORNING
     Route: 048
     Dates: start: 2022
  3. EBASTINE [Suspect]
     Active Substance: EBASTINE
     Indication: Antiallergic therapy
  4. IBUPROFEN [Concomitant]
     Active Substance: IBUPROFEN
     Dosage: 2 X 800 RETARD PLUS
  5. DAFALGAN [Concomitant]
     Active Substance: ACETAMINOPHEN
     Dosage: 1 GRAM
  6. TRAMADOL [Concomitant]
     Active Substance: TRAMADOL
     Dosage: UNK

REACTIONS (4)
  - Knee arthroplasty [Unknown]
  - Product use in unapproved indication [Unknown]
  - Drug effective for unapproved indication [Unknown]
  - Intentional product use issue [Unknown]

NARRATIVE: CASE EVENT DATE: 20220101
